FAERS Safety Report 7893851-2 (Version None)
Quarter: 2011Q4

REPORT INFORMATION
  Report Type: 
  Country: None (occurrence: None)
  Receive Date: 20111104
  Receipt Date: 20111028
  Transmission Date: 20120403
  Serious: Yes (Other)
  Sender: FDA-Public Use
  Company Number: PHHY2011CA13914

PATIENT
  Sex: Male

DRUGS (6)
  1. ATENOLOL [Concomitant]
     Indication: BLOOD PRESSURE ABNORMAL
     Dates: start: 20110301
  2. HYDROCHLOROTHIAZIDE [Concomitant]
     Indication: BLOOD PRESSURE ABNORMAL
  3. SANDOSTATIN LAR [Suspect]
     Indication: NEUROENDOCRINE CARCINOMA
     Dosage: 30 MG, QMO
     Route: 030
     Dates: start: 20110120
  4. SANDOSTATIN LAR [Suspect]
     Dosage: 30 MG, QW2
     Route: 030
  5. NORVASC [Concomitant]
     Indication: BLOOD PRESSURE ABNORMAL
  6. SANDOSTATIN LAR [Suspect]
     Dosage: 30 MG EVERY 04 WEEKS
     Route: 030

REACTIONS (16)
  - HEART RATE DECREASED [None]
  - GASTROOESOPHAGEAL REFLUX DISEASE [None]
  - HEART RATE IRREGULAR [None]
  - ARTHRALGIA [None]
  - OEDEMA PERIPHERAL [None]
  - PALPITATIONS [None]
  - URINE ANALYSIS ABNORMAL [None]
  - BLOOD PRESSURE INCREASED [None]
  - MUSCULOSKELETAL STIFFNESS [None]
  - FATIGUE [None]
  - THROAT TIGHTNESS [None]
  - BACK PAIN [None]
  - ANXIETY [None]
  - DYSPEPSIA [None]
  - DIARRHOEA [None]
  - RASH PRURITIC [None]
